FAERS Safety Report 6567354-1 (Version None)
Quarter: 2010Q1

REPORT INFORMATION
  Report Type: 
  Country: None (occurrence: None)
  Receive Date: 20100202
  Receipt Date: 20100121
  Transmission Date: 20100710
  Serious: Yes (Other)
  Sender: FDA-Public Use
  Company Number: PHHY2010JP03699

PATIENT
  Age: 79 Year
  Sex: Male

DRUGS (1)
  1. RASILEZ [Suspect]
     Indication: HYPERTENSION
     Dosage: 150 MG
     Route: 048
     Dates: start: 20100115, end: 20100120

REACTIONS (4)
  - ATRIAL FIBRILLATION [None]
  - HAEMATOCRIT [None]
  - PALPITATIONS [None]
  - TACHYCARDIA [None]
